FAERS Safety Report 7583542-X (Version None)
Quarter: 2011Q2

REPORT INFORMATION
  Report Type: 
  Country: None (occurrence: None)
  Receive Date: 20110527
  Receipt Date: 20101008
  Transmission Date: 20111010
  Serious: Yes (Other)
  Sender: FDA-Public Use
  Company Number: US201002003431

PATIENT
  Age: 44 Year
  Sex: Female
  Weight: 102.9 kg

DRUGS (5)
  1. BYETTA [Suspect]
     Dates: start: 20050101, end: 20080901
  2. EXENATIDE PEN (EXENATIDE PEN) [Concomitant]
  3. CALCIUM (CALCIUM) [Concomitant]
  4. METFORMIN HCL [Concomitant]
  5. RISPERDAL [Concomitant]

REACTIONS (1)
  - PANCREATITIS [None]
